FAERS Safety Report 21615848 (Version 1)
Quarter: 2022Q4

REPORT INFORMATION
  Report Type: Spontaneous
  Country: AU (occurrence: AU)
  Receive Date: 20221118
  Receipt Date: 20221118
  Transmission Date: 20230112
  Serious: Yes (Other)
  Sender: FDA-Public Use
  Company Number: AU-BAXTER-2022BAX024616

PATIENT
  Age: 69 Year
  Sex: Male

DRUGS (18)
  1. DOXORUBICIN [Suspect]
     Active Substance: DOXORUBICIN
     Indication: Diffuse large B-cell lymphoma recurrent
     Dosage: 8 CYCLES OF RCHOP CHEMOTHERAPY, ACHIEVED PARTIAL RESPONSE
     Route: 065
     Dates: end: 202112
  2. DOXORUBICIN [Suspect]
     Active Substance: DOXORUBICIN
     Indication: Diffuse large B-cell lymphoma refractory
  3. CYCLOPHOSPHAMIDE [Suspect]
     Active Substance: CYCLOPHOSPHAMIDE
     Indication: Diffuse large B-cell lymphoma recurrent
     Dosage: 8 CYCLES OF RCHOP CHEMOTHERAPY, ACHIEVED PARTIAL RESPONSE
     Route: 065
     Dates: end: 202112
  4. CYCLOPHOSPHAMIDE [Suspect]
     Active Substance: CYCLOPHOSPHAMIDE
     Indication: Diffuse large B-cell lymphoma refractory
  5. IFOSFAMIDE [Suspect]
     Active Substance: IFOSFAMIDE
     Indication: Diffuse large B-cell lymphoma recurrent
     Dosage: 3 CYCLE OF RICE, ACHIEVED COMPLETE METABOLIC RESPONSE
     Route: 065
  6. IFOSFAMIDE [Suspect]
     Active Substance: IFOSFAMIDE
     Indication: Diffuse large B-cell lymphoma refractory
  7. RITUXIMAB [Suspect]
     Active Substance: RITUXIMAB
     Indication: Diffuse large B-cell lymphoma recurrent
     Dosage: 8 CYCLES OF RCHOP CHEMOTHERAPY, ACHIEVED PARTIAL RESPONSE
     Route: 065
     Dates: end: 202112
  8. RITUXIMAB [Suspect]
     Active Substance: RITUXIMAB
     Indication: Diffuse large B-cell lymphoma refractory
     Dosage: 3 CYCLE OF RICE CHEMOTHERAPY, ACHIEVED COMPLETE METABOLIC RESPONSE
     Route: 065
  9. PREDNISONE [Suspect]
     Active Substance: PREDNISONE
     Indication: Diffuse large B-cell lymphoma recurrent
     Dosage: 8 CYCLES OF RCHOP CHEMOTHERAPY, ACHIEVED PARTIAL RESPONSE
     Route: 065
     Dates: end: 202112
  10. PREDNISONE [Suspect]
     Active Substance: PREDNISONE
     Indication: Diffuse large B-cell lymphoma refractory
  11. VINCRISTINE [Suspect]
     Active Substance: VINCRISTINE
     Indication: Diffuse large B-cell lymphoma recurrent
     Dosage: 8 CYCLES OF RCHOP CHEMOTHERAPY, ACHIEVED PARTIAL RESPONSE
     Route: 065
     Dates: end: 202112
  12. VINCRISTINE [Suspect]
     Active Substance: VINCRISTINE
     Indication: Diffuse large B-cell lymphoma refractory
  13. CARBOPLATIN [Suspect]
     Active Substance: CARBOPLATIN
     Indication: Diffuse large B-cell lymphoma recurrent
     Dosage: 3 CYCLE OF RICE CHEMOTHERAPY, ACHIEVED COMPLETE METABOLIC RESPONSE
     Route: 065
  14. CARBOPLATIN [Suspect]
     Active Substance: CARBOPLATIN
     Indication: Diffuse large B-cell lymphoma refractory
  15. ETOPOSIDE [Suspect]
     Active Substance: ETOPOSIDE
     Indication: Diffuse large B-cell lymphoma recurrent
     Dosage: 3 CYCLE OF RICE CHEMOTHERAPY, ACHIEVED COMPLETE METABOLIC RESPONSE
     Route: 065
  16. ETOPOSIDE [Suspect]
     Active Substance: ETOPOSIDE
     Indication: Diffuse large B-cell lymphoma refractory
  17. GENETICALLY-MODIFIED AUTOLOGOUS T CELLS NOS [Suspect]
     Active Substance: GENETICALLY-MODIFIED AUTOLOGOUS T CELLS NOS
     Indication: Diffuse large B-cell lymphoma recurrent
     Dosage: THIRD LINE OF CAR-T THERAPY
     Route: 065
  18. GENETICALLY-MODIFIED AUTOLOGOUS T CELLS NOS [Suspect]
     Active Substance: GENETICALLY-MODIFIED AUTOLOGOUS T CELLS NOS
     Indication: Diffuse large B-cell lymphoma refractory

REACTIONS (3)
  - Disease progression [Recovered/Resolved]
  - Disease progression [Unknown]
  - Therapy partial responder [Unknown]

NARRATIVE: CASE EVENT DATE: 20221001
